FAERS Safety Report 11014549 (Version 2)
Quarter: 2015Q2

REPORT INFORMATION
  Report Type: Spontaneous
  Country: US (occurrence: US)
  Receive Date: 20150412
  Receipt Date: 20150525
  Transmission Date: 20150821
  Serious: No
  Sender: FDA-Public Use
  Company Number: US-JNJFOC-20140706759

PATIENT
  Age: 59 Year
  Sex: Male
  Weight: 66.68 kg

DRUGS (2)
  1. OLYSIO [Suspect]
     Active Substance: SIMEPREVIR
     Indication: HEPATITIS C
     Route: 048
     Dates: start: 20140510
  2. SOVALDI [Suspect]
     Active Substance: SOFOSBUVIR
     Indication: HEPATITIS C
     Route: 048
     Dates: start: 20140510

REACTIONS (3)
  - Product physical issue [Recovering/Resolving]
  - Weight increased [Not Recovered/Not Resolved]
  - Off label use [Not Recovered/Not Resolved]

NARRATIVE: CASE EVENT DATE: 20140510
